FAERS Safety Report 16961951 (Version 2)
Quarter: 2020Q1

REPORT INFORMATION
  Report Type: Spontaneous
  Country: US (occurrence: US)
  Receive Date: 20191025
  Receipt Date: 20200122
  Transmission Date: 20200409
  Serious: Yes (Hospitalization)
  Sender: FDA-Public Use
  Company Number: US-VERTEX PHARMACEUTICALS-2019-010303

PATIENT
  Sex: Male

DRUGS (11)
  1. E-400 [Concomitant]
  2. ORKAMBI [Suspect]
     Active Substance: IVACAFTOR\LUMACAFTOR
     Indication: CYSTIC FIBROSIS
     Dosage: UNK
     Route: 048
  3. AZITHROMYCIN ANHYDROUS. [Concomitant]
     Active Substance: AZITHROMYCIN ANHYDROUS
  4. MEPHYTON [Concomitant]
     Active Substance: PHYTONADIONE
  5. BOOST [Concomitant]
     Active Substance: DIETARY SUPPLEMENT
  6. NEXIUM I.V. [Concomitant]
     Active Substance: ESOMEPRAZOLE SODIUM
  7. PULMOZYME [Concomitant]
     Active Substance: DORNASE ALFA
  8. KITABIS PAK [Concomitant]
     Active Substance: TOBRAMYCIN
  9. VITAMIN A [RETINOL] [Concomitant]
     Active Substance: RETINOL
  10. ZENPEP [Concomitant]
     Active Substance: PANCRELIPASE AMYLASE\PANCRELIPASE LIPASE\PANCRELIPASE PROTEASE
  11. CAYSTON [Concomitant]
     Active Substance: AZTREONAM

REACTIONS (1)
  - Infective pulmonary exacerbation of cystic fibrosis [Unknown]

NARRATIVE: CASE EVENT DATE: 2019
